FAERS Safety Report 5763263-6 (Version None)
Quarter: 2008Q2

REPORT INFORMATION
  Report Type: 
  Country: None (occurrence: None)
  Receive Date: 20080602
  Receipt Date: 20080326
  Transmission Date: 20081010
  Serious: No
  Sender: FDA-Public Use
  Company Number: PHEH2008US03175

PATIENT
  Age: 81 Year
  Sex: Female

DRUGS (1)
  1. TEKTURNA [Suspect]
     Dosage: 150MG

REACTIONS (3)
  - BLOOD PRESSURE SYSTOLIC INCREASED [None]
  - FATIGUE [None]
  - SLUGGISHNESS [None]
